FAERS Safety Report 7916854-8 (Version None)
Quarter: 2011Q4

REPORT INFORMATION
  Report Type: 
  Country: None (occurrence: None)
  Receive Date: 20111116
  Receipt Date: 20111110
  Transmission Date: 20120403
  Serious: Yes (Hospitalization)
  Sender: FDA-Public Use
  Company Number: US-ABBOTT-11P-163-0872194-00

PATIENT
  Sex: Male
  Weight: 97.61 kg

DRUGS (13)
  1. PROTONIX [Concomitant]
     Indication: GASTROOESOPHAGEAL REFLUX DISEASE
     Route: 048
  2. LORTAB [Concomitant]
     Indication: PRODUCT USED FOR UNKNOWN INDICATION
  3. SILENOR [Concomitant]
     Indication: INSOMNIA
     Dosage: ONCE DAILY AT BEDTIME
  4. MELATONIN [Concomitant]
     Indication: INSOMNIA
  5. HUMIRA [Suspect]
     Indication: CROHN'S DISEASE
     Route: 058
     Dates: start: 20111023, end: 20111023
  6. PREDNISONE TAB [Concomitant]
     Indication: PRODUCT USED FOR UNKNOWN INDICATION
     Dosage: WILL START WEANING TOMORROW
  7. VYVANSE [Concomitant]
     Indication: ATTENTION DEFICIT/HYPERACTIVITY DISORDER
  8. PHENERGAN [Concomitant]
     Indication: NAUSEA
  9. AMBIEN [Concomitant]
     Indication: INSOMNIA
     Dosage: ONCE DAILY AT BEDTIME
  10. LIALDA [Concomitant]
     Indication: PRODUCT USED FOR UNKNOWN INDICATION
  11. SAVELLA [Concomitant]
     Indication: FIBROMYALGIA
  12. MS CONTIN [Concomitant]
     Indication: PRODUCT USED FOR UNKNOWN INDICATION
  13. WELLBUTRIN [Concomitant]
     Indication: DEPRESSION

REACTIONS (1)
  - RECTAL HAEMORRHAGE [None]
